FAERS Safety Report 22068639 (Version 1)
Quarter: 2023Q1

REPORT INFORMATION
  Report Type: Spontaneous
  Country: GB (occurrence: GB)
  Receive Date: 20230307
  Receipt Date: 20230307
  Transmission Date: 20230417
  Serious: Yes (Other)
  Sender: FDA-Public Use
  Company Number: None

PATIENT
  Age: 25 Year
  Sex: Female
  Weight: 90 kg

DRUGS (5)
  1. LISINOPRIL [Suspect]
     Active Substance: LISINOPRIL
     Indication: Product used for unknown indication
     Dosage: 2.5 MILLIGRAM DAILY; UNIT DOSE : 2.5 MG , FREQUENCY : OD, THERAPY END DATE : NASK
     Dates: start: 20230207
  2. DESOGESTREL [Concomitant]
     Active Substance: DESOGESTREL
     Indication: Product used for unknown indication
     Dosage: PLEASE MAKE AN APPOINTMENT...UNIT DOSE: 1 DF, FREQUENCY TIME : 1 DAY
     Dates: start: 20211117
  3. FEXOFENADINE [Concomitant]
     Active Substance: FEXOFENADINE HYDROCHLORIDE
     Indication: Product used for unknown indication
     Dosage: 1 DOSAGE FORMS DAILY; UNIT DOSE : 1 DF , FREQUENCY : OD
     Dates: start: 20221125
  4. FLUCLOXACILLIN [Concomitant]
     Active Substance: FLUCLOXACILLIN
     Indication: Product used for unknown indication
     Dosage: 4 DOSAGE FORMS DAILY; UNIT DOSE : 1 DF , FREQUENCY : 4 TIMES A DAY, DURATION : 7 DAYS
     Dates: start: 20221209, end: 20221216
  5. HYDROMOL [Concomitant]
     Indication: Product used for unknown indication
     Dosage: USE AS DIRECTED, EMOLLIENT
     Dates: start: 20230207

REACTIONS (5)
  - Dizziness [Recovered/Resolved]
  - Palpitations [Recovered/Resolved]
  - Nausea [Recovered/Resolved]
  - Malaise [Unknown]
  - Tachycardia [Unknown]
